FAERS Safety Report 9711741 (Version 2)
Quarter: 2013Q4

REPORT INFORMATION
  Report Type: Spontaneous
  Country: US (occurrence: US)
  Receive Date: 20131126
  Receipt Date: 20131126
  Transmission Date: 20140711
  Serious: No
  Sender: FDA-Public Use
  Company Number: US-BRISTOL-MYERS SQUIBB COMPANY-18798124

PATIENT
  Age: 69 Year
  Sex: Female
  Weight: 69.39 kg

DRUGS (2)
  1. BYDUREON 2MG PEN DISPOSABLE [Suspect]
     Indication: TYPE 2 DIABETES MELLITUS
     Dosage: NO OF INJ:2
     Route: 058
  2. GLIMEPIRIDE [Concomitant]
     Route: 048

REACTIONS (6)
  - Injection site haemorrhage [Recovered/Resolved]
  - Decreased appetite [Recovered/Resolved]
  - Injection site extravasation [Unknown]
  - Injection site swelling [Recovering/Resolving]
  - Injection site erythema [Recovering/Resolving]
  - Drug dose omission [Unknown]
